FAERS Safety Report 10027946 (Version 1)
Quarter: 2014Q1

REPORT INFORMATION
  Report Type: Spontaneous
  Country: AU (occurrence: None)
  Receive Date: 20140226
  Receipt Date: 20140226
  Transmission Date: 20141002
  Serious: Yes (Other)
  Sender: FDA-Public Use
  Company Number: 2013AU0420

PATIENT
  Age: 3 Year
  Sex: Female

DRUGS (2)
  1. KINERET (ANAKINRA), NOT AVAILABLE [Suspect]
     Indication: JUVENILE IDIOPATHIC ARTHRITIS
  2. STEROID (CORTICOSTEROIDS) (NULL) [Suspect]

REACTIONS (2)
  - Crohn^s disease [None]
  - Enterocolitis haemorrhagic [None]
